FAERS Safety Report 10745236 (Version 1)
Quarter: 2015Q1

REPORT INFORMATION
  Report Type: Spontaneous
  Country: US (occurrence: None)
  Receive Date: 20150126
  Receipt Date: 20150126
  Transmission Date: 20150721
  Serious: Yes (Hospitalization)
  Sender: FDA-Public Use
  Company Number: None

PATIENT
  Age: 70 Year
  Sex: Male

DRUGS (1)
  1. BRUOG 254 [Suspect]
     Active Substance: CETUXIMAB\ERIBULIN MESYLATE

REACTIONS (2)
  - Hyponatraemia [None]
  - Anaemia [None]

NARRATIVE: CASE EVENT DATE: 20150120
